FAERS Safety Report 12368391 (Version 1)
Quarter: 2016Q2

REPORT INFORMATION
  Report Type: Spontaneous
  Country: US (occurrence: US)
  Receive Date: 20160513
  Receipt Date: 20160513
  Transmission Date: 20160815
  Serious: Yes (Other)
  Sender: FDA-Public Use
  Company Number: US-PFIZER INC-2016253722

PATIENT
  Sex: Male
  Weight: 68 kg

DRUGS (5)
  1. FINASTERIDE. [Concomitant]
     Active Substance: FINASTERIDE
     Indication: PROSTATIC DISORDER
     Dosage: 5 MG, 1X/DAY
     Route: 048
  2. PRAVASTATIN [Concomitant]
     Active Substance: PRAVASTATIN\PRAVASTATIN SODIUM
     Indication: BLOOD CHOLESTEROL INCREASED
     Dosage: 40 MG, 1X/DAY
     Route: 048
  3. FLOMAX [Concomitant]
     Active Substance: TAMSULOSIN HYDROCHLORIDE
     Indication: PROSTATIC DISORDER
     Dosage: 0.4 MG, 1X/DAY
     Route: 048
  4. DOXYCYCLINE HYCLATE. [Suspect]
     Active Substance: DOXYCYCLINE HYCLATE
     Indication: PROSTATE INFECTION
     Dosage: UNK
     Route: 048
  5. HYDROCHLOROTHIAZIDE WITH TRIAMTERENE [Concomitant]
     Active Substance: HYDROCHLOROTHIAZIDE\TRIAMTERENE
     Indication: HYPERTENSION
     Dosage: [TRIAMTERENE 75MG]/[HYDROCHLOROTHIAZIDE 50MG], ONE HALF TABLET, 1X/DAY
     Route: 048

REACTIONS (5)
  - Erosive oesophagitis [Unknown]
  - Nausea [Unknown]
  - Pharyngeal disorder [Unknown]
  - Product quality issue [Unknown]
  - Gastrooesophageal reflux disease [Unknown]
